FAERS Safety Report 7893019-X (Version None)
Quarter: 2011Q4

REPORT INFORMATION
  Report Type: 
  Country: None (occurrence: None)
  Receive Date: 20111104
  Receipt Date: 20111031
  Transmission Date: 20120403
  Serious: Yes (Hospitalization, Other)
  Sender: FDA-Public Use
  Company Number: DE-SANOFI-AVENTIS-2011SA071407

PATIENT
  Age: 81 Year
  Sex: Female
  Weight: 63 kg

DRUGS (8)
  1. LYRICA [Suspect]
     Route: 048
     Dates: start: 20110725, end: 20110725
  2. ALL OTHER THERAPEUTIC PRODUCTS [Suspect]
     Dosage: 200-600 MG DAILY PER OS
     Route: 048
     Dates: start: 20110725, end: 20110806
  3. ACETAMINOPHEN [Suspect]
     Dosage: 1000-4000 MG DAILY I.V.
     Route: 042
     Dates: start: 20110725, end: 20110725
  4. SIMVASTATIN [Concomitant]
     Route: 065
     Dates: start: 20080101, end: 20110101
  5. ZOLPIDEM [Suspect]
     Route: 048
     Dates: start: 20110723, end: 20110808
  6. TETRAZEPAM [Suspect]
     Dosage: 25-50 MG DAILY
     Route: 048
     Dates: start: 20110724, end: 20110806
  7. LYRICA [Suspect]
     Route: 048
     Dates: start: 20110730, end: 20110808
  8. ACETAMINOPHEN [Suspect]
     Dosage: 1000-4000 MG DAILY I.V.
     Route: 042
     Dates: start: 20110727, end: 20110802

REACTIONS (1)
  - HEPATITIS ACUTE [None]
